FAERS Safety Report 23249978 (Version 1)
Quarter: 2023Q4

REPORT INFORMATION
  Report Type: Report from Study
  Country: US (occurrence: US)
  Receive Date: 20231201
  Receipt Date: 20231201
  Transmission Date: 20240110
  Serious: Yes (Hospitalization, Other)
  Sender: FDA-Public Use
  Company Number: US-ALXN-A202211038AA

PATIENT
  Sex: Male

DRUGS (1)
  1. SOLIRIS [Suspect]
     Active Substance: ECULIZUMAB
     Indication: Myasthenia gravis
     Dosage: UNK
     Route: 065

REACTIONS (5)
  - Vascular graft complication [Unknown]
  - Localised infection [Unknown]
  - Cellulitis [Unknown]
  - Wound [Recovering/Resolving]
  - Product temperature excursion issue [Unknown]

NARRATIVE: CASE EVENT DATE: 20220101
